FAERS Safety Report 5229117-9 (Version None)
Quarter: 2007Q1

REPORT INFORMATION
  Report Type: 
  Country: None (occurrence: None)
  Receive Date: 20061201
  Receipt Date: 20060321
  Transmission Date: 20070707
  Serious: Yes (Hospitalization)
  Sender: FDA-Public Use
  Company Number: 2006-140104-NL

PATIENT
  Age: 20 Year
  Sex: Female
  Weight: 67.1 kg

DRUGS (3)
  1. NUVARING [Suspect]
     Indication: CONTRACEPTION
     Dosage: VAGINAL, 3 WEEKS IN, 1 WEEK OUT
     Route: 067
     Dates: start: 20050101, end: 20060301
  2. SYNTHROID [Concomitant]
  3. STRATTERA [Concomitant]

REACTIONS (1)
  - DEEP VEIN THROMBOSIS [None]
